FAERS Safety Report 9807060 (Version 2)
Quarter: 2014Q1

REPORT INFORMATION
  Report Type: Spontaneous
  Country: FR (occurrence: FR)
  Receive Date: 20140110
  Receipt Date: 20140121
  Transmission Date: 20141002
  Serious: Yes (Hospitalization)
  Sender: FDA-Public Use
  Company Number: FR-AMGEN-FRASP2014000962

PATIENT
  Age: 67 Year
  Sex: Female

DRUGS (4)
  1. XGEVA [Suspect]
     Indication: METASTASES TO BONE
     Dosage: 120 MG, QMO
     Route: 042
     Dates: start: 201310, end: 20131106
  2. CAELYX [Suspect]
     Indication: PRODUCT USED FOR UNKNOWN INDICATION
     Dosage: 1 DF, Q4WK
     Route: 042
     Dates: start: 20130920, end: 20131115
  3. CACIT D3 [Concomitant]
     Dosage: UNK
     Dates: start: 201309
  4. KALEORID [Concomitant]
     Dosage: UNK
     Dates: start: 201309

REACTIONS (2)
  - Pyrexia [Recovered/Resolved]
  - Acute generalised exanthematous pustulosis [Recovering/Resolving]
